FAERS Safety Report 10478487 (Version 1)
Quarter: 2014Q3

REPORT INFORMATION
  Report Type: Spontaneous
  Country: US (occurrence: None)
  Receive Date: 20140925
  Receipt Date: 20140925
  Transmission Date: 20150326
  Serious: Yes (Hospitalization)
  Sender: FDA-Public Use
  Company Number: None

PATIENT
  Age: 42 Year
  Sex: Male

DRUGS (5)
  1. ACETCM.NAPH.NC [Concomitant]
  2. GOGENTIN [Concomitant]
  3. CLONIDINE. [Concomitant]
     Active Substance: CLONIDINE
  4. LEVOTHYROXINE [Concomitant]
     Active Substance: LEVOTHYROXINE
  5. DEPAKOTE [Suspect]
     Active Substance: DIVALPROEX SODIUM
     Indication: BIPOLAR DISORDER
     Dosage: 500 MG, 3 A DAY, TWICE DAILY, MOUTH
     Route: 048

REACTIONS (4)
  - Poor quality sleep [None]
  - Decreased appetite [None]
  - Dyspnoea [None]
  - Terminal insomnia [None]
